FAERS Safety Report 4381070-6 (Version None)
Quarter: 2004Q2

REPORT INFORMATION
  Report Type: 
  Country: None (occurrence: None)
  Receive Date: 20040601
  Receipt Date: 20040323
  Transmission Date: 20050107
  Serious: No
  Sender: FDA-Public Use
  Company Number: FABR-10515

PATIENT
  Age: 9 Year
  Sex: Male
  Weight: 27.9869 kg

DRUGS (3)
  1. FABRAZYME [Suspect]
     Indication: FABRY'S DISEASE
     Dosage: 1 MG/KG, IV
     Route: 042
     Dates: start: 20040317
  2. STEROID [Concomitant]
  3. ANTIPYRETIC [Concomitant]

REACTIONS (1)
  - MEMORY IMPAIRMENT [None]
